FAERS Safety Report 7037502-8 (Version None)
Quarter: 2010Q4

REPORT INFORMATION
  Report Type: 
  Country: None (occurrence: None)
  Receive Date: 20101011
  Receipt Date: 20101008
  Transmission Date: 20110411
  Serious: Yes (Death)
  Sender: FDA-Public Use
  Company Number: B0654888A

PATIENT
  Sex: Male
  Weight: 59.87 kg

DRUGS (1)
  1. MARAVIROC [Suspect]
     Dosage: 150MG TWICE PER DAY
     Route: 048
     Dates: start: 20050218, end: 20050510

REACTIONS (2)
  - END STAGE AIDS [None]
  - GIARDIASIS [None]
